FAERS Safety Report 9147279 (Version 1)
Quarter: 2013Q1

REPORT INFORMATION
  Report Type: Spontaneous
  Country: US (occurrence: US)
  Receive Date: 20130307
  Receipt Date: 20130307
  Transmission Date: 20140127
  Serious: No
  Sender: FDA-Public Use
  Company Number: US-ASTRAZENECA-2013SE12654

PATIENT
  Age: 55 Year
  Sex: Female
  Weight: 71.7 kg

DRUGS (5)
  1. SEROQUEL [Suspect]
     Indication: SLEEP DISORDER
     Route: 048
  2. SEROQUEL [Suspect]
     Indication: SLEEP DISORDER
     Dosage: GENERIC
     Route: 048
  3. SEROQUEL [Suspect]
     Indication: SLEEP DISORDER
     Route: 048
     Dates: start: 200701, end: 2011
  4. SEROQUEL [Suspect]
     Indication: SLEEP DISORDER
     Dosage: BRAND SEROQUEL 75 MG WITH GENERIC OF SEROQUEL 25 MG
     Route: 048
  5. LAMICTAL [Concomitant]
     Indication: SLEEP DISORDER
     Route: 048

REACTIONS (9)
  - Peripheral coldness [Unknown]
  - Paraesthesia [Unknown]
  - Hyperhidrosis [Unknown]
  - Anxiety [Unknown]
  - Insomnia [Unknown]
  - Paraesthesia oral [Unknown]
  - Drug withdrawal syndrome [Unknown]
  - Drug ineffective [Unknown]
  - Off label use [Unknown]
